FAERS Safety Report 17502849 (Version 1)
Quarter: 2020Q1

REPORT INFORMATION
  Report Type: Spontaneous
  Country: US (occurrence: US)
  Receive Date: 20200305
  Receipt Date: 20200305
  Transmission Date: 20200409
  Serious: No
  Sender: FDA-Public Use
  Company Number: None

PATIENT
  Age: 55 Year
  Sex: Male
  Weight: 135 kg

DRUGS (1)
  1. SPRAVATO [Suspect]
     Active Substance: ESKETAMINE
     Indication: DEPRESSION
     Dosage: ?          OTHER FREQUENCY:WEEKLY;?
     Route: 045

REACTIONS (4)
  - Cardiac flutter [None]
  - Blood potassium decreased [None]
  - Heart rate irregular [None]
  - Atrial fibrillation [None]

NARRATIVE: CASE EVENT DATE: 20200304
